FAERS Safety Report 26027122 (Version 1)
Quarter: 2025Q4

REPORT INFORMATION
  Report Type: Spontaneous
  Country: AU (occurrence: AU)
  Receive Date: 20251111
  Receipt Date: 20251111
  Transmission Date: 20260118
  Serious: Yes (Hospitalization, Other)
  Sender: AMNEAL
  Company Number: AU-AMNEAL PHARMACEUTICALS-2025-AMRX-04307

PATIENT
  Age: 18 Year

DRUGS (1)
  1. TESTOSTERONE [Suspect]
     Active Substance: TESTOSTERONE
     Indication: Product used for unknown indication
     Dosage: UNK
     Route: 065

REACTIONS (3)
  - Cerebral venous sinus thrombosis [Recovering/Resolving]
  - Gaze palsy [Recovering/Resolving]
  - Papilloedema [Recovering/Resolving]
